FAERS Safety Report 5792624-4 (Version None)
Quarter: 2008Q2

REPORT INFORMATION
  Report Type: 
  Country: None (occurrence: None)
  Receive Date: 20080624
  Receipt Date: 20080616
  Transmission Date: 20081010
  Serious: Yes (Other)
  Sender: FDA-Public Use
  Company Number: 2008AP001240

PATIENT
  Age: 79 Year
  Sex: Female

DRUGS (6)
  1. FLUTICASONE PROPIONATE [Suspect]
     Dosage: QD NAS
     Route: 045
     Dates: start: 20080216, end: 20080520
  2. FLUTICASONE PROPIONATE [Concomitant]
  3. RABEPRAZOLE SODIUM [Concomitant]
  4. RISEDRONATE SODIUM [Concomitant]
  5. URSODIOL [Concomitant]
  6. LORAZEPAM [Concomitant]

REACTIONS (4)
  - DEVICE MALFUNCTION [None]
  - DRUG INEFFECTIVE [None]
  - NASAL CONGESTION [None]
  - RHINORRHOEA [None]
